FAERS Safety Report 18644142 (Version 1)
Quarter: 2020Q4

REPORT INFORMATION
  Report Type: Spontaneous
  Country: US (occurrence: US)
  Receive Date: 20201221
  Receipt Date: 20201221
  Transmission Date: 20210114
  Serious: Yes (Other)
  Sender: FDA-Public Use
  Company Number: US-PFIZER INC-2020499207

PATIENT
  Age: 41 Year
  Sex: Female
  Weight: 62.6 kg

DRUGS (1)
  1. CELEBREX [Suspect]
     Active Substance: CELECOXIB
     Indication: NEURALGIA
     Dosage: 200 MG, 2X/DAY ( TAKE ONE TWICE DAILY)
     Route: 048
     Dates: start: 201806, end: 202012

REACTIONS (5)
  - Gastric disorder [Unknown]
  - Off label use [Unknown]
  - Vomiting [Not Recovered/Not Resolved]
  - Nausea [Recovering/Resolving]
  - Product use issue [Unknown]

NARRATIVE: CASE EVENT DATE: 201806
